FAERS Safety Report 9619135 (Version 2)
Quarter: 2013Q4

REPORT INFORMATION
  Report Type: Spontaneous
  Country: US (occurrence: US)
  Receive Date: 20131014
  Receipt Date: 20131118
  Transmission Date: 20140711
  Serious: Yes (Death)
  Sender: FDA-Public Use
  Company Number: US-PFIZER INC-2013292146

PATIENT
  Age: 78 Year
  Sex: Male

DRUGS (2)
  1. SUTENT [Suspect]
     Indication: RENAL CANCER
     Dosage: 37.5 MG (12.5 MG X3), UNK
     Route: 048
     Dates: start: 20130904
  2. SUTENT [Suspect]
     Dosage: 50 MG, DAILY
     Route: 048
     Dates: end: 20130930

REACTIONS (2)
  - Disease progression [Fatal]
  - Renal cancer [Fatal]
